FAERS Safety Report 7609525-9 (Version None)
Quarter: 2011Q3

REPORT INFORMATION
  Report Type: 
  Country: None (occurrence: None)
  Receive Date: 20110706
  Receipt Date: 20110621
  Transmission Date: 20111222
  Serious: Yes (Hospitalization)
  Sender: FDA-Public Use
  Company Number: AH11-001-CSAE

PATIENT
  Age: 20 Year
  Sex: Male
  Weight: 51 kg

DRUGS (1)
  1. SKELAXIN [Suspect]
     Indication: INVESTIGATION
     Dosage: SINGLE DOSE, ORAL
     Route: 048
     Dates: start: 20110621

REACTIONS (6)
  - DIZZINESS [None]
  - FALL [None]
  - LACERATION [None]
  - HAEMORRHAGE [None]
  - HEAD INJURY [None]
  - MEMORY IMPAIRMENT [None]
